FAERS Safety Report 9445773 (Version 1)
Quarter: 2013Q3

REPORT INFORMATION
  Report Type: Spontaneous
  Country: JP (occurrence: JP)
  Receive Date: 20130807
  Receipt Date: 20130807
  Transmission Date: 20140515
  Serious: Yes (Other)
  Sender: FDA-Public Use
  Company Number: JP-ASTRAZENECA-2013SE60434

PATIENT
  Age: 82 Year
  Sex: Male

DRUGS (4)
  1. CASODEX [Suspect]
     Indication: PROSTATE CANCER
     Route: 048
  2. CASODEX [Suspect]
     Indication: PROSTATE CANCER
     Route: 048
  3. LEUPLIN [Concomitant]
     Indication: PROSTATE CANCER
     Dosage: DOSE UNKNOWN
     Route: 065
  4. ODYNE [Concomitant]

REACTIONS (3)
  - Malignant neoplasm progression [Unknown]
  - Glycosylated haemoglobin increased [Recovering/Resolving]
  - Glucose urine present [Unknown]
